FAERS Safety Report 14619749 (Version 1)
Quarter: 2018Q1

REPORT INFORMATION
  Report Type: Spontaneous
  Country: US (occurrence: US)
  Receive Date: 20180309
  Receipt Date: 20180309
  Transmission Date: 20180509
  Serious: Yes (Other)
  Sender: FDA-Public Use
  Company Number: None

PATIENT
  Age: 14 Year
  Sex: Female
  Weight: 45.9 kg

DRUGS (1)
  1. OMEPRAZOLE DR [Suspect]
     Active Substance: OMEPRAZOLE
     Indication: GASTROOESOPHAGEAL REFLUX DISEASE
     Dosage: ?          QUANTITY:1 CAPSULE(S);?
     Route: 048
     Dates: start: 20180122, end: 20180206

REACTIONS (12)
  - Abnormal behaviour [None]
  - Aggression [None]
  - Treatment noncompliance [None]
  - Influenza like illness [None]
  - Dyspnoea [None]
  - Eczema [None]
  - Pyrexia [None]
  - Abdominal pain [None]
  - Chills [None]
  - Depression [None]
  - Nausea [None]
  - Suicidal ideation [None]

NARRATIVE: CASE EVENT DATE: 20180205
